FAERS Safety Report 5901157-3 (Version None)
Quarter: 2008Q3

REPORT INFORMATION
  Report Type: 
  Country: None (occurrence: None)
  Receive Date: 20080929
  Receipt Date: 20080916
  Transmission Date: 20090109
  Serious: Yes (Other)
  Sender: FDA-Public Use
  Company Number: CA-ROCHE-587121

PATIENT
  Age: 11 Month
  Sex: Male
  Weight: 15.9 kg

DRUGS (18)
  1. MYCOPHENOLATE MOFETIL [Suspect]
     Indication: NEPHROTIC SYNDROME
     Route: 065
  2. CYCLOSPORINE [Suspect]
     Indication: NEPHROTIC SYNDROME
     Route: 065
  3. DEXAMETHASONE [Concomitant]
  4. COTRIM [Concomitant]
     Dosage: REPORTED AS CO-TRIMAZOLE
  5. PREDNISONE TAB [Concomitant]
  6. FUROSEMIDE [Concomitant]
  7. HYDROCHLOROTHIAZIDE [Concomitant]
  8. SPIRONOLACTONE [Concomitant]
  9. PENICILLIN V [Concomitant]
  10. ALBUMIN (HUMAN) [Concomitant]
  11. LOSARTAN [Concomitant]
  12. RAMIPRIL [Concomitant]
  13. AMLODIPINE [Concomitant]
  14. MINOXIDIL [Concomitant]
  15. LABETALOL HCL [Concomitant]
  16. NIFEDIPINE [Concomitant]
  17. ENOXAPARIN SODIUM [Concomitant]
  18. IMMUNE GLOBULIN INTRAVENOUS (HUMAN) [Concomitant]

REACTIONS (2)
  - PROTEINURIA [None]
  - PULMONARY EMBOLISM [None]
